FAERS Safety Report 8477797-7 (Version None)
Quarter: 2012Q2

REPORT INFORMATION
  Report Type: 
  Country: None (occurrence: None)
  Receive Date: 20120629
  Receipt Date: 20120622
  Transmission Date: 20120825
  Serious: Yes (Hospitalization)
  Sender: FDA-Public Use
  Company Number: US-BAYER-2011-075227

PATIENT
  Age: 22 Year
  Sex: Female
  Weight: 86.168 kg

DRUGS (1)
  1. YAZ [Suspect]
     Indication: CONTRACEPTION
     Dosage: UNK
     Dates: start: 20060101, end: 20090801

REACTIONS (3)
  - PAIN [None]
  - GALLBLADDER INJURY [None]
  - INJURY [None]
